FAERS Safety Report 17919318 (Version 7)
Quarter: 2020Q4

REPORT INFORMATION
  Report Type: Report from Study
  Country: US (occurrence: US)
  Receive Date: 20200619
  Receipt Date: 20201109
  Transmission Date: 20210113
  Serious: No
  Sender: FDA-Public Use
  Company Number: NVSC2020US171889

PATIENT
  Sex: Female

DRUGS (1)
  1. COSENTYX [Suspect]
     Active Substance: SECUKINUMAB
     Indication: PSORIATIC ARTHROPATHY
     Dosage: 300 MG, QW
     Route: 058

REACTIONS (15)
  - Injection site mass [Unknown]
  - Candida infection [Not Recovered/Not Resolved]
  - Musculoskeletal stiffness [Unknown]
  - Aphthous ulcer [Not Recovered/Not Resolved]
  - Malaise [Unknown]
  - Drug ineffective [Unknown]
  - Vulvovaginal mycotic infection [Not Recovered/Not Resolved]
  - Taste disorder [Unknown]
  - Nervousness [Unknown]
  - Injection site bruising [Unknown]
  - Injection site pain [Unknown]
  - Abdominal pain [Unknown]
  - Injection site haemorrhage [Recovered/Resolved]
  - Pain [Unknown]
  - Flatulence [Unknown]
